FAERS Safety Report 15296791 (Version 1)
Quarter: 2018Q3

REPORT INFORMATION
  Report Type: Report from Study
  Country: US (occurrence: US)
  Receive Date: 20180820
  Receipt Date: 20180820
  Transmission Date: 20181010
  Serious: Yes (Hospitalization, Other)
  Sender: FDA-Public Use
  Company Number: US-JNJFOC-20170618555

PATIENT
  Age: 84 Year
  Sex: Female

DRUGS (16)
  1. ASPIRIN. [Concomitant]
     Active Substance: ASPIRIN
  2. BENADRYL [Concomitant]
     Active Substance: DIPHENHYDRAMINE HYDROCHLORIDE
  3. MELATONIN [Concomitant]
     Active Substance: MELATONIN
  4. IMBRUVICA [Suspect]
     Active Substance: IBRUTINIB
     Indication: CHRONIC LYMPHOCYTIC LEUKAEMIA
     Route: 048
     Dates: start: 20180616
  5. ZOCOR [Concomitant]
     Active Substance: SIMVASTATIN
  6. TURMERIC [Concomitant]
     Active Substance: HERBALS\TURMERIC
  7. ELIQUIS [Concomitant]
     Active Substance: APIXABAN
  8. PROTONIX [Concomitant]
     Active Substance: PANTOPRAZOLE SODIUM
  9. XANAX [Concomitant]
     Active Substance: ALPRAZOLAM
  10. IMBRUVICA [Suspect]
     Active Substance: IBRUTINIB
     Indication: CHRONIC LYMPHOCYTIC LEUKAEMIA
     Route: 048
     Dates: start: 20170607
  11. IMBRUVICA [Suspect]
     Active Substance: IBRUTINIB
     Indication: CHRONIC LYMPHOCYTIC LEUKAEMIA
     Route: 048
     Dates: start: 20170608, end: 2017
  12. VITAMIN D [Concomitant]
     Active Substance: CHOLECALCIFEROL
  13. ATENOLOL. [Concomitant]
     Active Substance: ATENOLOL
  14. LOPRESSOR [Concomitant]
     Active Substance: METOPROLOL TARTRATE
  15. IMBRUVICA [Suspect]
     Active Substance: IBRUTINIB
     Indication: CHRONIC LYMPHOCYTIC LEUKAEMIA
     Route: 048
     Dates: start: 20180615
  16. PROZAC [Concomitant]
     Active Substance: FLUOXETINE HYDROCHLORIDE

REACTIONS (13)
  - Poor quality sleep [Unknown]
  - Sepsis [Unknown]
  - Insomnia [Unknown]
  - Platelet count decreased [Unknown]
  - Fatigue [Unknown]
  - Atrial fibrillation [Not Recovered/Not Resolved]
  - Haemoglobin decreased [Recovered/Resolved]
  - Diarrhoea [Unknown]
  - Infection [Not Recovered/Not Resolved]
  - Skin atrophy [Unknown]
  - White blood cell count decreased [Unknown]
  - Rash [Unknown]
  - Contusion [Not Recovered/Not Resolved]

NARRATIVE: CASE EVENT DATE: 2017
